FAERS Safety Report 7716318-0 (Version None)
Quarter: 2011Q3

REPORT INFORMATION
  Report Type: 
  Country: None (occurrence: None)
  Receive Date: 20110829
  Receipt Date: 20110819
  Transmission Date: 20111222
  Serious: Yes (Other)
  Sender: FDA-Public Use
  Company Number: PHEH2010US03494

PATIENT
  Sex: Male

DRUGS (6)
  1. TRELSTAR [Concomitant]
  2. LUPRON [Concomitant]
     Dates: start: 20100420
  3. ALOXI [Concomitant]
     Dosage: 0.25 MG,
  4. TAXOTERE [Concomitant]
     Dosage: 140 MG,
  5. ZOMETA [Suspect]
     Dosage: 4 MG, MONTHLY
     Dates: start: 20060301, end: 20090301
  6. NEULASTA [Concomitant]
     Dosage: 6 MG
     Route: 058

REACTIONS (6)
  - OSTEONECROSIS OF JAW [None]
  - ANXIETY [None]
  - INJURY [None]
  - PAIN [None]
  - DISABILITY [None]
  - ANHEDONIA [None]
